FAERS Safety Report 19659972 (Version 1)
Quarter: 2021Q3

REPORT INFORMATION
  Report Type: Spontaneous
  Country: US (occurrence: US)
  Receive Date: 20210804
  Receipt Date: 20210804
  Transmission Date: 20211014
  Serious: Yes (Other)
  Sender: FDA-Public Use
  Company Number: None

PATIENT
  Sex: Female
  Weight: 67.05 kg

DRUGS (2)
  1. DUAVEE [Suspect]
     Active Substance: BAZEDOXIFENE ACETATE\ESTROGENS, CONJUGATED
  2. NAPROXEN. [Concomitant]
     Active Substance: NAPROXEN

REACTIONS (14)
  - Vision blurred [None]
  - Feeling hot [None]
  - Weight increased [None]
  - Hypoaesthesia [None]
  - Arthralgia [None]
  - Optic nerve disorder [None]
  - Muscle spasms [None]
  - Pain [None]
  - Thrombosis [None]
  - Musculoskeletal stiffness [None]
  - Contusion [None]
  - Neck pain [None]
  - Bone marrow disorder [None]
  - Erythema [None]
